FAERS Safety Report 9394359 (Version 1)
Quarter: 2013Q3

REPORT INFORMATION
  Report Type: Spontaneous
  Country: CA (occurrence: CA)
  Receive Date: 20130711
  Receipt Date: 20130711
  Transmission Date: 20140515
  Serious: Yes (Hospitalization)
  Sender: FDA-Public Use
  Company Number: CA-AMGEN-CANSP2013047588

PATIENT
  Age: 65 Year
  Sex: Female

DRUGS (4)
  1. ARANESP [Suspect]
     Indication: NEPHROPATHY
     Dosage: 80 MUG, UNK
     Dates: start: 20060802
  2. CRESTOR [Concomitant]
  3. METOPROLOL [Concomitant]
  4. VITAMINS                           /00067501/ [Concomitant]

REACTIONS (4)
  - Haemoglobin decreased [Unknown]
  - Chest discomfort [Unknown]
  - Angina pectoris [Unknown]
  - Dizziness [Unknown]
